FAERS Safety Report 21586703 (Version 1)
Quarter: 2022Q4

REPORT INFORMATION
  Report Type: Spontaneous
  Country: CN (occurrence: CN)
  Receive Date: 20221113
  Receipt Date: 20221113
  Transmission Date: 20230113
  Serious: Yes (Other)
  Sender: FDA-Public Use
  Company Number: CN-JNJFOC-20221109879

PATIENT
  Age: 45 Year
  Sex: Male
  Weight: 65 kg

DRUGS (3)
  1. DARZALEX [Suspect]
     Active Substance: DARATUMUMAB
     Indication: Plasma cell myeloma
     Dosage: DARATUMUMAB (APPROVAL NO.: S20190030) 1000 MG + NS (APPROVAL NO.: NATIONAL MEDICINE PERMISSION NUMBE
     Route: 041
     Dates: start: 20220908, end: 20221030
  2. BORTEZOMIB [Suspect]
     Active Substance: BORTEZOMIB
     Indication: Plasma cell myeloma
     Dosage: 2 DOSES IN 7 DAYS
     Route: 058
     Dates: start: 20220826
  3. BORTEZOMIB [Suspect]
     Active Substance: BORTEZOMIB
     Dosage: 2 DOSES IN 7 DAYS
     Route: 058
     Dates: start: 20220908, end: 20221030

REACTIONS (5)
  - Agranulocytosis [Recovered/Resolved]
  - Septic shock [Recovering/Resolving]
  - Pneumonia [Recovering/Resolving]
  - Rectal tenesmus [Unknown]
  - Platelet count decreased [Recovered/Resolved]

NARRATIVE: CASE EVENT DATE: 20220916
